FAERS Safety Report 16160172 (Version 3)
Quarter: 2019Q4

REPORT INFORMATION
  Report Type: Report from Study
  Country: US (occurrence: US)
  Receive Date: 20190404
  Receipt Date: 20191016
  Transmission Date: 20200122
  Serious: Yes (Death, Hospitalization)
  Sender: FDA-Public Use
  Company Number: US-ACTELION-A-NJ2019-188509

PATIENT
  Sex: Male

DRUGS (1)
  1. TRACLEER [Suspect]
     Active Substance: BOSENTAN
     Indication: PULMONARY HYPERTENSION
     Dosage: 31.25 MG, BID
     Route: 048
     Dates: start: 20180911, end: 20190905

REACTIONS (5)
  - Atrioventricular septal defect [Fatal]
  - Fontan procedure [Unknown]
  - Cardiac failure [Fatal]
  - Pulmonary hypertension [Fatal]
  - Post procedural complication [Fatal]
